FAERS Safety Report 10478895 (Version 1)
Quarter: 2014Q3

REPORT INFORMATION
  Report Type: Spontaneous
  Country: US (occurrence: US)
  Receive Date: 20140926
  Receipt Date: 20140926
  Transmission Date: 20150326
  Serious: Yes (Disabling, Other)
  Sender: FDA-Public Use
  Company Number: US-TAKEDA-2014TUS009155

PATIENT
  Sex: Female

DRUGS (1)
  1. ACTOS [Suspect]
     Active Substance: PIOGLITAZONE HYDROCHLORIDE
     Dosage: 30 MG, UNK
     Route: 048
     Dates: start: 2009, end: 2010

REACTIONS (9)
  - Retinal injury [Unknown]
  - Myocardial infarction [Unknown]
  - Wheelchair user [Unknown]
  - Cerebrovascular accident [Unknown]
  - Intraocular pressure increased [Unknown]
  - Macular degeneration [Unknown]
  - Cognitive disorder [Unknown]
  - Cardiac failure congestive [Unknown]
  - Visual impairment [Unknown]

NARRATIVE: CASE EVENT DATE: 2009
